FAERS Safety Report 7483033-0 (Version None)
Quarter: 2011Q2

REPORT INFORMATION
  Report Type: 
  Country: None (occurrence: None)
  Receive Date: 20110516
  Receipt Date: 20110427
  Transmission Date: 20111010
  Serious: Yes (Other)
  Sender: FDA-Public Use
  Company Number: US-BAYER-200919658NA

PATIENT
  Age: 68 Year
  Sex: Male
  Weight: 98.413 kg

DRUGS (12)
  1. TRASYLOL [Suspect]
     Indication: CORONARY ARTERY BYPASS
     Dosage: LOADING DOSE OF 200 ML FOLLOWED BY 50 ML / HOUR DRIP
     Route: 042
     Dates: start: 20030721, end: 20030721
  2. LOPRESSOR [Concomitant]
     Dosage: 50 MG HALF TABLET TWICE A DAY
     Route: 048
  3. PLAVIX [Concomitant]
     Dosage: UNK
     Dates: start: 20030213
  4. LOVENOX [Concomitant]
     Dosage: UNK
     Dates: start: 20030204
  5. ISOSORBIDE DINITRATE [Concomitant]
     Dosage: 10 MG, TID
     Route: 048
     Dates: start: 20020722
  6. NITROGLYCERIN [Concomitant]
     Dosage: UNK UNK, PRN
     Route: 060
  7. ZOCOR [Concomitant]
     Dosage: 80 MG, QD
     Route: 048
  8. HEPARIN [Concomitant]
     Dosage: 34000 U, UNK
     Route: 042
     Dates: start: 20030720, end: 20030720
  9. HEPARIN [Concomitant]
     Dosage: 10000 CARDIOPULMONARY BYPASS
     Dates: start: 20030720, end: 20030720
  10. ACETYLSALICYLIC ACID SRT [Concomitant]
     Dosage: 81 MG, QD
     Route: 048
  11. HYDROCHLOROTHIAZIDE [Concomitant]
     Dosage: 25 MG, QD
     Route: 048
  12. LASIX [Concomitant]
     Dosage: 40 MG, QD
     Route: 048

REACTIONS (5)
  - INJURY [None]
  - RENAL FAILURE CHRONIC [None]
  - RENAL FAILURE [None]
  - EMOTIONAL DISTRESS [None]
  - ANXIETY [None]
